FAERS Safety Report 25461730 (Version 2)
Quarter: 2025Q3

REPORT INFORMATION
  Report Type: Report from Study
  Country: BR (occurrence: BR)
  Receive Date: 20250620
  Receipt Date: 20250810
  Transmission Date: 20251021
  Serious: Yes (Other)
  Sender: ALEXION PHARMACEUTICALS
  Company Number: BR-AstraZeneca-CH-00891822A

PATIENT
  Age: 75 Year
  Sex: Male
  Weight: 68 kg

DRUGS (8)
  1. BENRALIZUMAB [Suspect]
     Active Substance: BENRALIZUMAB
     Indication: Asthma
  2. BENRALIZUMAB [Suspect]
     Active Substance: BENRALIZUMAB
  3. ALBUTEROL SULFATE [Concomitant]
     Active Substance: ALBUTEROL SULFATE
     Dosage: UNK, QD
  4. ASPIRIN [Concomitant]
     Active Substance: ASPIRIN
     Dosage: UNK, QD
  5. LOSARTAN [Concomitant]
     Active Substance: LOSARTAN
     Dosage: UNK, QD
  6. KETOCONAZOLE [Concomitant]
     Active Substance: KETOCONAZOLE
     Dosage: UNK, QD
  7. TADALAFIL [Concomitant]
     Active Substance: TADALAFIL
     Dosage: UNK, QD
  8. AZITHROMYCIN [Concomitant]
     Active Substance: AZITHROMYCIN
     Dosage: UNK, QD

REACTIONS (6)
  - Aortic aneurysm [Unknown]
  - Thrombosis [Unknown]
  - Off label use [Unknown]
  - Influenza [Recovering/Resolving]
  - Cough [Recovering/Resolving]
  - Pain [Unknown]

NARRATIVE: CASE EVENT DATE: 20240101
